FAERS Safety Report 8969410 (Version 1)
Quarter: 2012Q4

REPORT INFORMATION
  Report Type: 
  Country: US (occurrence: US)
  Receive Date: 20121218
  Receipt Date: 20121218
  Transmission Date: 20130627
  Serious: No
  Sender: FDA-Public Use
  Company Number: US-BRISTOL-MYERS SQUIBB COMPANY-16646929

PATIENT
  Age: 78 Year
  Sex: Male

DRUGS (4)
  1. ABILIFY [Suspect]
     Indication: DEPRESSION
     Dosage: reduced to 2 mg in Mar2010
     Dates: start: 201002
  2. EFFEXOR XR [Suspect]
     Indication: DEPRESSION
  3. REMERON [Suspect]
     Indication: DEPRESSION
  4. AMBIEN [Suspect]
     Indication: DEPRESSION

REACTIONS (1)
  - Tardive dyskinesia [Unknown]
